FAERS Safety Report 12147270 (Version 1)
Quarter: 2016Q1

REPORT INFORMATION
  Report Type: Spontaneous
  Country: US (occurrence: US)
  Receive Date: 20160304
  Receipt Date: 20160304
  Transmission Date: 20160526
  Serious: Yes (Other)
  Sender: FDA-Public Use
  Company Number: US-ALKERMES INC.-ALK-2016-000076

PATIENT

DRUGS (2)
  1. VIVITROL [Suspect]
     Active Substance: NALTREXONE
     Indication: ALCOHOLISM
     Dosage: 380 MG, Q4WK
     Route: 030
     Dates: start: 20151119, end: 20160121
  2. FLUOXETINE [Concomitant]
     Active Substance: FLUOXETINE HYDROCHLORIDE
     Indication: MENTAL DISORDER
     Dosage: UNK
     Route: 065

REACTIONS (12)
  - Alcoholism [Recovering/Resolving]
  - Weight decreased [Unknown]
  - Nausea [Unknown]
  - Lipase increased [Unknown]
  - Decreased appetite [Unknown]
  - Blood triglycerides increased [Unknown]
  - Retching [Not Recovered/Not Resolved]
  - Vomiting [Unknown]
  - Aspartate aminotransferase increased [Unknown]
  - Oesophagitis [Unknown]
  - Blood cholesterol increased [Unknown]
  - Liver function test increased [Unknown]

NARRATIVE: CASE EVENT DATE: 2015
